FAERS Safety Report 14654443 (Version 2)
Quarter: 2020Q2

REPORT INFORMATION
  Report Type: Report from Study
  Country: US (occurrence: US)
  Receive Date: 20180319
  Receipt Date: 20200508
  Transmission Date: 20200713
  Serious: Yes (Other)
  Sender: FDA-Public Use
  Company Number: US-BIOGEN-2018BI00542810

PATIENT
  Sex: Female

DRUGS (5)
  1. BUSPIRONE [Suspect]
     Active Substance: BUSPIRONE HYDROCHLORIDE
     Indication: PRODUCT USED FOR UNKNOWN INDICATION
     Route: 050
  2. TECFIDERA [Suspect]
     Active Substance: DIMETHYL FUMARATE
     Indication: MULTIPLE SCLEROSIS
     Route: 050
  3. TECFIDERA [Suspect]
     Active Substance: DIMETHYL FUMARATE
     Dosage: MAINTENANCE DOSE
     Route: 050
     Dates: start: 20170208
  4. ASPIRIN. [Concomitant]
     Active Substance: ASPIRIN
     Indication: MALAISE
     Route: 065
  5. TECFIDERA [Suspect]
     Active Substance: DIMETHYL FUMARATE
     Dosage: MAINTENANCE DOSE
     Route: 050

REACTIONS (11)
  - Speech disorder [Unknown]
  - Hypoaesthesia [Unknown]
  - Blood electrolytes decreased [Unknown]
  - Headache [Unknown]
  - Memory impairment [Unknown]
  - Gait inability [Unknown]
  - Cardiac failure congestive [Unknown]
  - Blood potassium decreased [Not Recovered/Not Resolved]
  - Dehydration [Unknown]
  - Overdose [Unknown]
  - Multiple sclerosis relapse [Unknown]
